FAERS Safety Report 25706325 (Version 1)
Quarter: 2025Q3

REPORT INFORMATION
  Report Type: Report from Study
  Country: US (occurrence: US)
  Receive Date: 20250820
  Receipt Date: 20250820
  Transmission Date: 20251020
  Serious: Yes (Hospitalization)
  Sender: OTSUKA
  Company Number: US-MMM-Otsuka-WVD98UYP

PATIENT
  Sex: Female

DRUGS (1)
  1. TOLVAPTAN [Suspect]
     Active Substance: TOLVAPTAN
     Indication: Congenital cystic kidney disease
     Route: 065
     Dates: start: 20250225, end: 202508

REACTIONS (4)
  - Viral infection [Recovered/Resolved]
  - Dry skin [Unknown]
  - Rash [Unknown]
  - Polyuria [Unknown]

NARRATIVE: CASE EVENT DATE: 20250312
